FAERS Safety Report 6599841-4 (Version None)
Quarter: 2010Q1

REPORT INFORMATION
  Report Type: 
  Country: None (occurrence: None)
  Receive Date: 20100217
  Receipt Date: 20100127
  Transmission Date: 20100710
  Serious: Yes (Hospitalization, Other)
  Sender: FDA-Public Use
  Company Number: 2010AC000089

PATIENT
  Age: 59 Year
  Sex: Male

DRUGS (19)
  1. DIGOXIN [Suspect]
     Dosage: 0.25 MG; QD; PO
     Route: 048
     Dates: start: 20061101, end: 20070601
  2. LORTAB [Concomitant]
  3. XANAX [Concomitant]
  4. VIAGRA [Concomitant]
  5. WARFARIN SODIUM [Concomitant]
  6. GLYBURIDE [Concomitant]
  7. LASIX [Concomitant]
  8. LISINOPRIL [Concomitant]
  9. COREG [Concomitant]
  10. POTASSIUM [Concomitant]
  11. PRAVASTATIN [Concomitant]
  12. NITROGLYCERIN [Concomitant]
  13. CEPHALEXIN [Concomitant]
  14. CRESTOR [Concomitant]
  15. ENALAPRIL MALEATE [Concomitant]
  16. DILTIAZEM HCL [Concomitant]
  17. TALWIN [Concomitant]
  18. ASPIRIN [Concomitant]
  19. METOPROLOL TARTRATE [Concomitant]

REACTIONS (22)
  - ANHEDONIA [None]
  - ATAXIA [None]
  - ATRIAL FIBRILLATION [None]
  - BACK PAIN [None]
  - BALANCE DISORDER [None]
  - DYSPNOEA [None]
  - ECONOMIC PROBLEM [None]
  - EMOTIONAL DISTRESS [None]
  - ERECTILE DYSFUNCTION [None]
  - FALL [None]
  - HYPERTENSION [None]
  - INJURY [None]
  - ISCHAEMIC CARDIOMYOPATHY [None]
  - LOSS OF CONTROL OF LEGS [None]
  - MENTAL DISORDER [None]
  - NAUSEA [None]
  - OSTEOARTHRITIS [None]
  - PAIN [None]
  - PALPITATIONS [None]
  - PERIPHERAL SENSORIMOTOR NEUROPATHY [None]
  - PERONEAL NERVE PALSY [None]
  - SOCIAL AVOIDANT BEHAVIOUR [None]
